FAERS Safety Report 4321858-0 (Version None)
Quarter: 2004Q1

REPORT INFORMATION
  Report Type: 
  Country: None (occurrence: None)
  Receive Date: 20040322
  Receipt Date: 20031121
  Transmission Date: 20041129
  Serious: No
  Sender: FDA-Public Use
  Company Number: A-US2003-03824

PATIENT
  Age: 61 Year
  Sex: Female

DRUGS (9)
  1. TRACLEER [Suspect]
     Indication: PULMONARY HYPERTENSION
     Dosage: 62.5 MG, BID;125 MG, BID
     Dates: start: 20031028
  2. ALBUTEROL [Concomitant]
  3. COUMADIN [Concomitant]
  4. DEMADEX [Concomitant]
  5. POTASSIUM (POTASSIUM) [Concomitant]
  6. PROTONIX [Concomitant]
  7. K-DUR 10 [Concomitant]
  8. DILTIAZEM [Concomitant]
  9. ISORBID (ISOSORBIDE DINITRATE) [Concomitant]

REACTIONS (3)
  - ASTHENIA [None]
  - EOSINOPHIL COUNT INCREASED [None]
  - OEDEMA PERIPHERAL [None]
